FAERS Safety Report 17184582 (Version 2)
Quarter: 2019Q4

REPORT INFORMATION
  Report Type: Spontaneous
  Country: US (occurrence: US)
  Receive Date: 20191220
  Receipt Date: 20191230
  Transmission Date: 20200122
  Serious: No
  Sender: FDA-Public Use
  Company Number: US-PFIZER INC-2019549331

PATIENT
  Age: 62 Year
  Sex: Female

DRUGS (1)
  1. EUCRISA [Suspect]
     Active Substance: CRISABOROLE
     Dosage: UNK, 2X/DAY, APPLY TO AFFECTED AREAS TWICE A DAY]
     Route: 061

REACTIONS (3)
  - Application site pain [Unknown]
  - Sunburn [Unknown]
  - Scar [Unknown]
